FAERS Safety Report 15653688 (Version 2)
Quarter: 2018Q4

REPORT INFORMATION
  Report Type: Spontaneous
  Country: NL (occurrence: NL)
  Receive Date: 20181124
  Receipt Date: 20181130
  Transmission Date: 20190205
  Serious: Yes (Hospitalization, Other)
  Sender: FDA-Public Use
  Company Number: PHHY2018NL164015

PATIENT
  Sex: Female
  Weight: 61 kg

DRUGS (5)
  1. DUODOPA [Suspect]
     Active Substance: CARBIDOPA\LEVODOPA
     Indication: PARKINSON^S DISEASE
     Dosage: UNK
     Route: 050
  2. MELATONIN [Concomitant]
     Active Substance: MELATONIN
     Indication: PRODUCT USED FOR UNKNOWN INDICATION
     Dosage: UNK
     Route: 065
  3. OXAZEPAM. [Suspect]
     Active Substance: OXAZEPAM
     Indication: PRODUCT USED FOR UNKNOWN INDICATION
     Dosage: UNK
     Route: 065
  4. AMITRIPTYLINE [Concomitant]
     Active Substance: AMITRIPTYLINE
     Indication: PRODUCT USED FOR UNKNOWN INDICATION
     Dosage: UNK
     Route: 065
  5. LEVODOPA/CARBIDOPA [Concomitant]
     Active Substance: CARBIDOPA\LEVODOPA
     Indication: PRODUCT USED FOR UNKNOWN INDICATION
     Dosage: UNK
     Route: 065

REACTIONS (56)
  - Stoma site discharge [Recovered/Resolved]
  - Posture abnormal [Not Recovered/Not Resolved]
  - Chest discomfort [Unknown]
  - Contusion [Not Recovered/Not Resolved]
  - Drug effect incomplete [Not Recovered/Not Resolved]
  - Balance disorder [Not Recovered/Not Resolved]
  - Movement disorder [Not Recovered/Not Resolved]
  - Hypoaesthesia [Unknown]
  - Decreased appetite [Not Recovered/Not Resolved]
  - Fall [Recovered/Resolved]
  - Somnolence [Unknown]
  - Dyskinesia [Recovering/Resolving]
  - Weight decreased [Recovering/Resolving]
  - Apnoea [Not Recovered/Not Resolved]
  - Abdominal discomfort [Unknown]
  - Sleep disorder [Not Recovered/Not Resolved]
  - Insomnia [Recovered/Resolved]
  - Stoma site erythema [Recovered/Resolved]
  - Stoma site reaction [Not Recovered/Not Resolved]
  - Stoma site odour [Recovered/Resolved]
  - Musculoskeletal stiffness [Not Recovered/Not Resolved]
  - Dysstasia [Not Recovered/Not Resolved]
  - Gastrointestinal stoma complication [Unknown]
  - Weight decreased [Recovered/Resolved]
  - Dyspnoea [Unknown]
  - Stoma site discomfort [Not Recovered/Not Resolved]
  - Hyperventilation [Not Recovered/Not Resolved]
  - On and off phenomenon [Not Recovered/Not Resolved]
  - Fibroma [Recovered/Resolved]
  - Hallucination [Recovered/Resolved]
  - Stoma site rash [Not Recovered/Not Resolved]
  - Panic reaction [Not Recovered/Not Resolved]
  - Haemorrhage [Recovered/Resolved]
  - Cardiac disorder [Not Recovered/Not Resolved]
  - Limb discomfort [Not Recovered/Not Resolved]
  - Sleep disorder [Recovered/Resolved]
  - Stoma site pain [Not Recovered/Not Resolved]
  - Memory impairment [Not Recovered/Not Resolved]
  - Fall [Not Recovered/Not Resolved]
  - Wheezing [Not Recovered/Not Resolved]
  - Haemoglobin decreased [Not Recovered/Not Resolved]
  - Dysuria [Not Recovered/Not Resolved]
  - Dyschezia [Not Recovered/Not Resolved]
  - Nocturia [Not Recovered/Not Resolved]
  - Abnormal dreams [Not Recovered/Not Resolved]
  - Pain in extremity [Not Recovered/Not Resolved]
  - Stoma site discharge [Not Recovered/Not Resolved]
  - Stoma site inflammation [Not Recovered/Not Resolved]
  - Hyperkinesia [Not Recovered/Not Resolved]
  - Post-traumatic pain [Not Recovered/Not Resolved]
  - Fall [Recovered/Resolved]
  - Dyspnoea [Not Recovered/Not Resolved]
  - Freezing phenomenon [Unknown]
  - Fear of falling [Recovered/Resolved]
  - Nightmare [Not Recovered/Not Resolved]
  - Hallucination [Not Recovered/Not Resolved]

NARRATIVE: CASE EVENT DATE: 2016
